FAERS Safety Report 10449174 (Version 1)
Quarter: 2014Q3

REPORT INFORMATION
  Report Type: Spontaneous
  Country: US (occurrence: US)
  Receive Date: 20140912
  Receipt Date: 20140912
  Transmission Date: 20150326
  Serious: Yes (Hospitalization)
  Sender: FDA-Public Use
  Company Number: US-BRISTOL-MYERS SQUIBB COMPANY-20883526

PATIENT
  Age: 52 Year
  Sex: Male
  Weight: 56 kg

DRUGS (24)
  1. DILAUDID [Concomitant]
     Active Substance: HYDROMORPHONE HYDROCHLORIDE
     Dosage: TAB
     Dates: start: 20140209
  2. VFEND [Concomitant]
     Active Substance: VORICONAZOLE
     Dosage: TAB
     Dates: start: 20140305
  3. MAGIC MOUTHWASH [Concomitant]
     Active Substance: DIPHENHYDRAMINE HYDROCHLORIDE\LIDOCAINE HYDROCHLORIDE\NYSTATIN
     Dates: start: 20131206
  4. PERIDEX [Concomitant]
     Active Substance: CHLORHEXIDINE GLUCONATE
     Dosage: ORAL SOLUTION
     Route: 048
     Dates: start: 20140305
  5. BACTRIM DS [Concomitant]
     Active Substance: SULFAMETHOXAZOLE\TRIMETHOPRIM
     Dosage: TAB
     Dates: start: 20140305
  6. REFRESH [Concomitant]
     Active Substance: UNSPECIFIED INGREDIENT
     Dosage: ORAL DROPS
  7. ZYRTEC [Concomitant]
     Active Substance: CETIRIZINE HYDROCHLORIDE
     Dosage: TAB
     Dates: start: 20140117
  8. TEMOVATE [Concomitant]
     Active Substance: CLOBETASOL PROPIONATE
     Dosage: OINTMENT
     Dates: start: 20140305
  9. MYCELEX [Concomitant]
     Active Substance: CLOTRIMAZOLE
     Dates: start: 20140305
  10. SEVELAMER HCL [Concomitant]
     Dates: start: 20140401
  11. ZOVIRAX [Concomitant]
     Active Substance: ACYCLOVIR
     Dosage: TAB
     Dates: start: 20140305
  12. RESTASIS [Concomitant]
     Active Substance: CYCLOSPORINE
     Dosage: ORAL DROPS
     Route: 048
     Dates: start: 20130925
  13. HYDROXYUREA. [Suspect]
     Active Substance: HYDROXYUREA
     Indication: WHITE BLOOD CELL COUNT INCREASED
     Route: 048
     Dates: start: 201402, end: 20140401
  14. PEPCID [Concomitant]
     Active Substance: FAMOTIDINE
     Dosage: TAB
     Dates: start: 20140209
  15. ZOFRAN [Concomitant]
     Active Substance: ONDANSETRON HYDROCHLORIDE
     Dosage: TAB
     Dates: start: 20131206
  16. PANTOPRAZOLE [Concomitant]
     Active Substance: PANTOPRAZOLE SODIUM
     Dosage: TAB
     Dates: start: 20131206
  17. SIMETHICONE [Concomitant]
     Active Substance: DIMETHICONE\SILICON DIOXIDE\SIMETHICONE
     Dosage: CHEWABLE TAB
  18. COLACE [Concomitant]
     Active Substance: DOCUSATE SODIUM
     Dosage: CACHET
     Dates: start: 20130227
  19. ATIVAN [Concomitant]
     Active Substance: LORAZEPAM
     Dosage: TAB
     Dates: start: 20140128
  20. MIRALAX [Concomitant]
     Active Substance: POLYETHYLENE GLYCOL 3350
     Dates: start: 20131206
  21. LYRICA [Concomitant]
     Active Substance: PREGABALIN
     Dosage: CAP
     Dates: start: 20140305
  22. AMBIEN [Concomitant]
     Active Substance: ZOLPIDEM TARTRATE
     Dosage: TAB
     Dates: start: 20140305
  23. ZYLOPRIM [Concomitant]
     Active Substance: ALLOPURINOL
     Dosage: TAB
     Dates: start: 20140331
  24. FLEXERIL [Concomitant]
     Active Substance: CYCLOBENZAPRINE HYDROCHLORIDE
     Dosage: TAB
     Dates: start: 20131206

REACTIONS (1)
  - Dysphagia [Recovered/Resolved]

NARRATIVE: CASE EVENT DATE: 20140331
